APPROVED DRUG PRODUCT: METHYLPHENIDATE HYDROCHLORIDE
Active Ingredient: METHYLPHENIDATE HYDROCHLORIDE
Strength: 10MG
Dosage Form/Route: TABLET;ORAL
Application: A040300 | Product #002 | TE Code: AB
Applicant: SPECGX LLC
Approved: Nov 27, 1998 | RLD: No | RS: No | Type: RX